FAERS Safety Report 4815627-2 (Version None)
Quarter: 2005Q4

REPORT INFORMATION
  Report Type: 
  Country: None (occurrence: None)
  Receive Date: 20051027
  Receipt Date: 20051018
  Transmission Date: 20060501
  Serious: Yes (Life-Threatening, Hospitalization)
  Sender: FDA-Public Use
  Company Number: 2005-09-1721

PATIENT
  Age: 60 Year
  Sex: Male

DRUGS (16)
  1. INTEGRILIN [Suspect]
     Dosage: SEE IMAGE
     Route: 042
     Dates: start: 20050901, end: 20050926
  2. INTEGRILIN [Suspect]
     Dosage: SEE IMAGE
     Route: 042
     Dates: start: 20050926, end: 20050926
  3. . [Concomitant]
  4. . [Concomitant]
  5. CLOPIDOGREL BISULFATE [Suspect]
  6. ASPIRIN [Concomitant]
  7. CEFTAZIDIME [Concomitant]
  8. BISOPROLOL FUMARATE [Concomitant]
  9. ENALAPRIL MALEATE [Concomitant]
  10. TORSEMIDE [Concomitant]
  11. ALLOPURINOL [Concomitant]
  12. ESOMEPRAZOLE [Concomitant]
  13. AMBROXOL [Concomitant]
  14. ACETYLCYSTEINE [Concomitant]
  15. SALBUTAMOL SULPHATE [Concomitant]
  16. HEPARIN [Suspect]

REACTIONS (11)
  - CARDIAC DISORDER [None]
  - CARDIAC TAMPONADE [None]
  - DEPRESSED LEVEL OF CONSCIOUSNESS [None]
  - GASTROINTESTINAL HAEMORRHAGE [None]
  - HAEMORRHAGIC DIATHESIS [None]
  - IMMUNE SYSTEM DISORDER [None]
  - PERICARDIAL HAEMORRHAGE [None]
  - PETECHIAE [None]
  - RENAL IMPAIRMENT [None]
  - SHOCK [None]
  - THROMBOCYTOPENIA [None]
